FAERS Safety Report 16321377 (Version 1)
Quarter: 2019Q2

REPORT INFORMATION
  Report Type: Report from Study
  Country: DE (occurrence: DE)
  Receive Date: 20190516
  Receipt Date: 20190516
  Transmission Date: 20190711
  Serious: Yes (Death, Life-Threatening)
  Sender: FDA-Public Use
  Company Number: DE-BAUSCH-BL-2019-014149

PATIENT
  Age: 45 Year
  Sex: Male
  Weight: 88 kg

DRUGS (73)
  1. PREDNISOLONE. [Suspect]
     Active Substance: PREDNISOLONE
     Route: 061
     Dates: start: 19981204, end: 19981204
  2. FORTUM [Suspect]
     Active Substance: CEFTAZIDIME
     Route: 042
     Dates: start: 19981111, end: 19981120
  3. ZIENAM [Suspect]
     Active Substance: CILASTATIN SODIUM\IMIPENEM
     Indication: INFECTION
     Route: 042
     Dates: start: 19981205, end: 19990101
  4. BACTRIM [Suspect]
     Active Substance: SULFAMETHOXAZOLE\TRIMETHOPRIM
     Route: 042
     Dates: start: 19981204, end: 19981206
  5. DIFLUCAN [Suspect]
     Active Substance: FLUCONAZOLE
     Indication: ANTIFUNGAL PROPHYLAXIS
     Route: 042
     Dates: end: 19981119
  6. CYMEVEN IV [Suspect]
     Active Substance: GANCICLOVIR
     Indication: PRODUCT USED FOR UNKNOWN INDICATION
     Route: 042
     Dates: start: 19981127, end: 19990101
  7. MAGNESIUM VERLA [Concomitant]
     Active Substance: MAGNESIUM
     Indication: BLOOD MAGNESIUM DECREASED
     Dosage: INTERMITTENT THERAPY.
     Route: 042
     Dates: end: 19981202
  8. SANDIMMUN [Concomitant]
     Active Substance: CYCLOSPORINE
     Indication: BONE MARROW TRANSPLANT
     Route: 042
  9. INTRALIPID [Concomitant]
     Active Substance: EGG PHOSPHOLIPIDS\GLYCERIN\SOYBEAN OIL
     Indication: PARENTERAL NUTRITION
     Route: 042
  10. MORPHIN [Concomitant]
     Active Substance: MORPHINE
     Indication: SEDATION
     Route: 042
     Dates: start: 19981111, end: 19981123
  11. GRANOCYTE [Concomitant]
     Active Substance: LENOGRASTIM
     Indication: BONE MARROW TRANSPLANT
     Route: 042
     Dates: end: 19981128
  12. ZOVIRAX [Concomitant]
     Active Substance: ACYCLOVIR
     Indication: PROPHYLAXIS
     Route: 042
     Dates: end: 19981122
  13. BACTRIM [Suspect]
     Active Substance: SULFAMETHOXAZOLE\TRIMETHOPRIM
     Route: 042
     Dates: start: 19981113, end: 19981120
  14. RESONIUM A [Suspect]
     Active Substance: SODIUM POLYSTYRENE SULFONATE
     Indication: HYPERKALAEMIA
     Route: 048
     Dates: start: 19981129, end: 19981129
  15. NEUPOGEN [Suspect]
     Active Substance: FILGRASTIM
     Indication: BONE MARROW TRANSPLANT
     Route: 042
     Dates: start: 19981127, end: 19981130
  16. SOLU-DECORTIN H [Concomitant]
     Indication: GRAFT VERSUS HOST DISEASE
     Route: 042
     Dates: start: 19981119, end: 19981121
  17. PENTAGLOBIN [Concomitant]
     Active Substance: HUMAN IMMUNOGLOBULIN G
     Indication: BONE MARROW TRANSPLANT
     Dosage: GIVEN ON 15, 19, 26 NOV ONLY.
     Route: 042
     Dates: start: 19981115, end: 19981126
  18. KONAKION [Suspect]
     Active Substance: PHYTONADIONE
     Indication: COAGULOPATHY
     Dosage: IRREGULAR/UNKNOWN DOSING.
     Route: 042
     Dates: start: 19981123, end: 19981207
  19. PREDNISOLONE. [Suspect]
     Active Substance: PREDNISOLONE
     Indication: CONJUNCTIVITIS
     Route: 061
     Dates: start: 19981207, end: 19990101
  20. NOVALGIN (METAMIZOLE SODIUM) [Suspect]
     Active Substance: METAMIZOLE SODIUM
     Route: 042
     Dates: start: 19981111, end: 19981121
  21. TAVOR (LORAZEPAM) [Suspect]
     Active Substance: LORAZEPAM
     Indication: SEDATION
     Route: 042
     Dates: end: 19981125
  22. URBASON SOLUBILE [Suspect]
     Active Substance: METHYLPREDNISOLONE SODIUM SUCCINATE
     Indication: GRAFT VERSUS HOST DISEASE
     Route: 042
     Dates: start: 19981121, end: 19990101
  23. AMBISOME [Suspect]
     Active Substance: AMPHOTERICIN B
     Indication: FUNGAL INFECTION
     Route: 042
     Dates: start: 19981122, end: 19990101
  24. LASIX [Suspect]
     Active Substance: FUROSEMIDE
     Indication: OEDEMA
     Route: 042
     Dates: start: 19981126, end: 19981126
  25. AMPHOTERICIN B. [Concomitant]
     Active Substance: AMPHOTERICIN B
     Indication: FUNGAL INFECTION
     Dosage: LEVEL 1/DAY.
     Route: 042
     Dates: start: 19981117, end: 19981121
  26. KALIUMCHLORID [Concomitant]
     Active Substance: POTASSIUM CHLORIDE
     Indication: HYPOKALAEMIA
     Dosage: INTERMITTENT THERAPY.
     Route: 042
  27. SOLUVIT [Concomitant]
     Active Substance: VITAMINS
  28. AMINOMIX [Concomitant]
     Indication: PARENTERAL NUTRITION
     Dosage: INTERMITTENT THERAPY.
     Route: 042
     Dates: end: 19981129
  29. ACC [Concomitant]
     Active Substance: ACETYLCYSTEINE
     Indication: UNEVALUABLE EVENT
     Route: 042
     Dates: start: 19981117, end: 19981119
  30. TAVEGIL [Concomitant]
     Active Substance: CLEMASTINE FUMARATE
     Indication: GRAFT VERSUS HOST DISEASE
     Route: 042
     Dates: start: 19981118, end: 19981121
  31. AMPHO-MORONAL [Concomitant]
     Active Substance: AMPHOTERICIN B
     Indication: ANTIFUNGAL PROPHYLAXIS
     Dosage: LOZENGES
     Route: 048
     Dates: end: 19981110
  32. KONAKION [Suspect]
     Active Substance: PHYTONADIONE
     Route: 042
     Dates: end: 19981112
  33. REMERGIL [Suspect]
     Active Substance: MIRTAZAPINE
     Route: 048
     Dates: start: 19981126, end: 19981130
  34. NOVALGIN (METAMIZOLE SODIUM) [Suspect]
     Active Substance: METAMIZOLE SODIUM
     Route: 042
     Dates: start: 19981205, end: 19981205
  35. ANTRA [Concomitant]
     Active Substance: OMEPRAZOLE
     Indication: PROPHYLAXIS
     Route: 042
     Dates: start: 19981113
  36. INZOLEN [Concomitant]
     Active Substance: MAGNESIUM ASPARTATE\POTASSIUM ASPARTATE
     Indication: ELECTROLYTE SUBSTITUTION THERAPY
     Route: 042
  37. CALCIUM [Concomitant]
     Active Substance: CALCIUM
     Indication: BLOOD CALCIUM DECREASED
     Route: 042
  38. SODIUM BICARBONATE. [Concomitant]
     Active Substance: SODIUM BICARBONATE
     Indication: ACIDOSIS
     Dosage: INTERMITTENT THERAPY.
     Route: 042
     Dates: start: 19981201, end: 19981206
  39. VANCOMYCIN [Concomitant]
     Active Substance: VANCOMYCIN
     Indication: INFECTION
     Dosage: INTERMITTENT THERAPY.
     Route: 042
     Dates: start: 19981111
  40. GENTAMYCIN [Suspect]
     Active Substance: GENTAMICIN
     Indication: CONJUNCTIVITIS
     Route: 047
     Dates: start: 19981129, end: 19981129
  41. FUROSEMID [Suspect]
     Active Substance: FUROSEMIDE
     Route: 042
     Dates: start: 19981208
  42. NOVALGIN (METAMIZOLE SODIUM) [Suspect]
     Active Substance: METAMIZOLE SODIUM
     Route: 042
     Dates: start: 19981208
  43. TOBRAMYCIN. [Suspect]
     Active Substance: TOBRAMYCIN
     Route: 042
     Dates: start: 19981121, end: 19981121
  44. SODIUM CHLORIDE. [Concomitant]
     Active Substance: SODIUM CHLORIDE
     Indication: HYPONATRAEMIA
     Route: 042
     Dates: start: 19981113
  45. SOLUVIT [Concomitant]
     Active Substance: VITAMINS
     Route: 042
  46. GLUCOSE [Concomitant]
     Active Substance: DEXTROSE
     Indication: PARENTERAL NUTRITION
     Dosage: 10, 40 OR 70 PERCENT SOLUTIONS.
     Route: 042
  47. PEPDUL [Concomitant]
     Active Substance: FAMOTIDINE
     Indication: PROPHYLAXIS
     Route: 042
     Dates: end: 19981110
  48. VITAMIN [Concomitant]
     Active Substance: VITAMINS
     Indication: NUTRITIONAL SUPPLEMENTATION
  49. CLONT [Concomitant]
     Indication: INFECTION
     Route: 042
  50. AMINOPLASMAL [Concomitant]
     Active Substance: AMINO ACIDS
     Indication: PARENTERAL NUTRITION
     Dosage: INTERMITTENT THERAPY.
     Route: 042
     Dates: start: 19981013
  51. FORTUM [Suspect]
     Active Substance: CEFTAZIDIME
     Indication: INFECTION
     Route: 042
     Dates: start: 19981126, end: 19981205
  52. BACTRIM [Suspect]
     Active Substance: SULFAMETHOXAZOLE\TRIMETHOPRIM
     Route: 042
     Dates: start: 19981127, end: 19981129
  53. FUROSEMID [Suspect]
     Active Substance: FUROSEMIDE
     Route: 042
     Dates: start: 19981202, end: 19981203
  54. TOBRAMYCIN. [Suspect]
     Active Substance: TOBRAMYCIN
     Indication: INFECTION
     Route: 042
     Dates: start: 19981114, end: 19981119
  55. MTX [Concomitant]
     Active Substance: METHOTREXATE SODIUM
     Indication: BONE MARROW TRANSPLANT
     Route: 042
     Dates: start: 19981111, end: 19981111
  56. TARIVID [Concomitant]
     Active Substance: OFLOXACIN
     Indication: INFECTION
     Route: 050
     Dates: end: 19981110
  57. CIPROBAY [Suspect]
     Active Substance: CIPROFLOXACIN
     Indication: CYSTITIS
     Dosage: SOLUTION
     Route: 042
     Dates: start: 19981130, end: 19990101
  58. DOPAMIN (DOPAMINE HYDROCHLORIDE) [Suspect]
     Active Substance: DOPAMINE HYDROCHLORIDE
     Indication: HYPOTENSION
     Route: 042
     Dates: start: 19981119, end: 19990101
  59. REMERGIL [Suspect]
     Active Substance: MIRTAZAPINE
     Indication: DEPRESSION
     Route: 048
     Dates: start: 19981203, end: 19981203
  60. ZIENAM [Suspect]
     Active Substance: CILASTATIN SODIUM\IMIPENEM
     Route: 042
     Dates: start: 19981120, end: 19981128
  61. BACTRIM [Suspect]
     Active Substance: SULFAMETHOXAZOLE\TRIMETHOPRIM
     Indication: INFECTION
     Route: 042
     Dates: start: 19981204, end: 19981206
  62. NOVALGIN (METAMIZOLE SODIUM) [Suspect]
     Active Substance: METAMIZOLE SODIUM
     Indication: PAIN
     Dosage: IRREGULAR/UNKNOWN DOSING.
     Route: 042
     Dates: start: 19981124, end: 19981128
  63. CANDIO-HERMAL [Concomitant]
     Active Substance: NYSTATIN
     Indication: CANDIDA INFECTION
     Route: 061
     Dates: start: 19981204, end: 19981204
  64. SOLUVIT [Concomitant]
     Active Substance: VITAMINS
     Indication: PARENTERAL NUTRITION
     Route: 042
  65. SOLUVIT [Concomitant]
     Active Substance: VITAMINS
  66. AQUAPHOR [Concomitant]
     Active Substance: PETROLATUM
     Indication: OEDEMA
     Route: 048
     Dates: start: 19981120, end: 19981120
  67. PROSTAVASIN [Concomitant]
     Active Substance: ALPROSTADIL ALFADEX
     Indication: CARDIOVASCULAR DISORDER
     Route: 042
     Dates: start: 19981111, end: 19981119
  68. FUROSEMID [Suspect]
     Active Substance: FUROSEMIDE
     Indication: OEDEMA
     Route: 042
     Dates: start: 19981205, end: 19981205
  69. FUROSEMID [Suspect]
     Active Substance: FUROSEMIDE
     Route: 042
     Dates: start: 19981013, end: 19981029
  70. VOMEX A [Suspect]
     Active Substance: DIMENHYDRINATE
     Indication: NAUSEA
     Route: 042
     Dates: start: 19981118, end: 19981130
  71. DOLANTIN [Concomitant]
     Active Substance: MEPERIDINE
     Indication: SEDATION
     Dosage: INTERMITTENT THERAPY.
     Route: 042
     Dates: start: 19981111, end: 19981121
  72. DIPEPTAMIN [Concomitant]
     Indication: PARENTERAL NUTRITION
     Dosage: INTERMITTENT THERAPY.
     Route: 042
     Dates: end: 19981128
  73. ACTRAPID [Concomitant]
     Active Substance: INSULIN HUMAN
     Indication: DIABETES MELLITUS
     Route: 042
     Dates: start: 19981115, end: 19981207

REACTIONS (2)
  - Graft versus host disease [Fatal]
  - Toxic epidermal necrolysis [Fatal]

NARRATIVE: CASE EVENT DATE: 19981121
